FAERS Safety Report 4768114-4 (Version None)
Quarter: 2005Q3

REPORT INFORMATION
  Report Type: 
  Country: None (occurrence: None)
  Receive Date: 20050912
  Receipt Date: 20050912
  Transmission Date: 20060218
  Serious: Yes (Other)
  Sender: FDA-Public Use
  Company Number: None

PATIENT
  Age: 46 Year
  Sex: Female
  Weight: 61.2356 kg

DRUGS (5)
  1. NAVELBINE [Suspect]
     Indication: BREAST CANCER
     Dosage: 50 MG/M^2, ORAL
     Route: 048
     Dates: start: 20021101, end: 20050715
  2. XELODA [Suspect]
     Indication: BREAST CANCER METASTATIC
     Dosage: 1000 MG/M^2/DAY, ORAL
     Route: 048
     Dates: start: 20021101, end: 20050715
  3. ZOMETA [Concomitant]
  4. FLONASE [Concomitant]
  5. STEROID TAPER [Concomitant]

REACTIONS (4)
  - ANAEMIA [None]
  - COUGH [None]
  - DYSPNOEA EXERTIONAL [None]
  - PULMONARY TOXICITY [None]
